FAERS Safety Report 9209602 (Version 1)
Quarter: 2013Q2

REPORT INFORMATION
  Report Type: Spontaneous
  Country: US (occurrence: None)
  Receive Date: 20130403
  Receipt Date: 20130403
  Transmission Date: 20140414
  Serious: Yes (Other)
  Sender: FDA-Public Use
  Company Number: None

PATIENT
  Sex: Female

DRUGS (1)
  1. KENALOG-40 INJ [Suspect]
     Indication: DRUG ERUPTION
     Route: 030
     Dates: start: 20130102

REACTIONS (2)
  - Injection site atrophy [None]
  - Musculoskeletal deformity [None]
